FAERS Safety Report 7609505-3 (Version None)
Quarter: 2011Q3

REPORT INFORMATION
  Report Type: 
  Country: None (occurrence: None)
  Receive Date: 20110706
  Receipt Date: 20110623
  Transmission Date: 20111222
  Serious: Yes (Other)
  Sender: FDA-Public Use
  Company Number: 2011SP029378

PATIENT
  Age: 34 Year
  Sex: Female

DRUGS (2)
  1. SPEED [Concomitant]
  2. IMPLANON [Suspect]
     Indication: CONTRACEPTION
     Dosage: 1 DF;
     Dates: start: 20080101

REACTIONS (5)
  - MUSCLE STRAIN [None]
  - PREGNANCY WITH IMPLANT CONTRACEPTIVE [None]
  - BREAST TENDERNESS [None]
  - BLIGHTED OVUM [None]
  - ABORTION INCOMPLETE [None]
